FAERS Safety Report 8135336-4 (Version None)
Quarter: 2012Q1

REPORT INFORMATION
  Report Type: 
  Country: None (occurrence: None)
  Receive Date: 20120210
  Receipt Date: 20120202
  Transmission Date: 20120608
  Serious: Yes (Death)
  Sender: FDA-Public Use
  Company Number: DKLU1076530

PATIENT
  Age: 8 Year
  Sex: Female

DRUGS (6)
  1. SABRIL [Suspect]
     Indication: EPILEPSY
     Dosage: 1500 MG MILLIGRAM(S), 2 IN 1 D, ORAL
     Route: 048
     Dates: start: 20110201
  2. MIRALAX [Concomitant]
  3. SYNTHROID [Concomitant]
  4. TOPAMAX [Concomitant]
  5. SINGULAIR [Concomitant]
  6. ZONISAMIDE [Concomitant]

REACTIONS (1)
  - DEATH [None]
